FAERS Safety Report 6446921-X (Version None)
Quarter: 2009Q4

REPORT INFORMATION
  Report Type: 
  Country: None (occurrence: None)
  Receive Date: 20091119
  Receipt Date: 20091116
  Transmission Date: 20100525
  Serious: Yes (Hospitalization, Other)
  Sender: FDA-Public Use
  Company Number: GB-MERCK-0911GBR00017

PATIENT
  Age: 82 Year
  Sex: Female

DRUGS (6)
  1. FOSAMAX [Suspect]
     Indication: PROPHYLAXIS
     Route: 048
     Dates: start: 20091011, end: 20091015
  2. ASPIRIN [Concomitant]
     Indication: PROPHYLAXIS
     Route: 048
     Dates: start: 20091007
  3. CALCIUM CARBONATE AND CHOLECALCIFEROL [Concomitant]
     Route: 048
     Dates: start: 20091007
  4. CITALOPRAM [Concomitant]
     Route: 065
  5. ACETAMINOPHEN [Concomitant]
     Indication: PAIN
     Route: 048
     Dates: start: 20091007
  6. TOLTERODINE [Concomitant]
     Route: 065

REACTIONS (5)
  - ERYTHEMA [None]
  - GLOSSODYNIA [None]
  - LIP SWELLING [None]
  - MOUTH ULCERATION [None]
  - PAIN IN JAW [None]
